FAERS Safety Report 20882073 (Version 1)
Quarter: 2022Q2

REPORT INFORMATION
  Report Type: Report from Study
  Country: AT (occurrence: AT)
  Receive Date: 20220527
  Receipt Date: 20220527
  Transmission Date: 20220721
  Serious: Yes (Other)
  Sender: FDA-Public Use
  Company Number: AT-IPSEN Group, Research and Development-2011-4483

PATIENT
  Age: 15 Year
  Sex: Female
  Weight: 42.1 kg

DRUGS (5)
  1. INCRELEX [Suspect]
     Active Substance: MECASERMIN
     Indication: Primary insulin like growth factor-1 deficiency
     Route: 065
     Dates: start: 20080220, end: 20090215
  2. INCRELEX [Suspect]
     Active Substance: MECASERMIN
     Route: 065
     Dates: start: 20090216, end: 20100216
  3. INCRELEX [Suspect]
     Active Substance: MECASERMIN
     Route: 065
     Dates: start: 20100217, end: 20110227
  4. INCRELEX [Suspect]
     Active Substance: MECASERMIN
     Route: 065
     Dates: start: 20110228, end: 201107
  5. INCRELEX [Suspect]
     Active Substance: MECASERMIN
     Route: 065
     Dates: start: 201107, end: 20111224

REACTIONS (1)
  - Hypertrophy [Recovered/Resolved]

NARRATIVE: CASE EVENT DATE: 20110907
